FAERS Safety Report 10047126 (Version 1)
Quarter: 2014Q1

REPORT INFORMATION
  Report Type: Spontaneous
  Country: US (occurrence: US)
  Receive Date: 20140331
  Receipt Date: 20140331
  Transmission Date: 20141002
  Serious: No
  Sender: FDA-Public Use
  Company Number: US-MYLANLABS-2013S1010606

PATIENT
  Age: 59 Year
  Sex: Female

DRUGS (4)
  1. FENTANYL TRANSDERMAL SYSTEM [Suspect]
     Indication: BACK PAIN
     Dosage: Q72H
     Route: 062
     Dates: start: 20130417
  2. OXYCODONE HYDROCHLORIDE TABLETS USP [Suspect]
     Indication: BACK PAIN
     Dosage: AND AS NEEDED
     Route: 048
     Dates: end: 20130417
  3. OXYCODONE HYDROCHLORIDE TABLETS USP [Suspect]
     Indication: BACK PAIN
     Route: 048
     Dates: start: 20130418
  4. GABAPENTIN [Concomitant]
     Indication: NEURALGIA

REACTIONS (8)
  - Headache [Recovering/Resolving]
  - Insomnia [Recovering/Resolving]
  - Nausea [Recovering/Resolving]
  - Hot flush [Recovering/Resolving]
  - Restless legs syndrome [Recovering/Resolving]
  - Rhinorrhoea [Recovering/Resolving]
  - Application site erythema [Recovered/Resolved]
  - Application site pruritus [Recovered/Resolved]
